FAERS Safety Report 9266547 (Version 12)
Quarter: 2019Q4

REPORT INFORMATION
  Report Type: Spontaneous
  Country: CA (occurrence: CA)
  Receive Date: 20130502
  Receipt Date: 20191104
  Transmission Date: 20200122
  Serious: Yes (Other)
  Sender: FDA-Public Use
  Company Number: CA-ROCHE-1219498

PATIENT
  Age: 67 Year
  Sex: Male
  Weight: 81 kg

DRUGS (8)
  1. XOLAIR [Suspect]
     Active Substance: OMALIZUMAB
     Route: 058
     Dates: start: 20170718
  2. SPIRIVA [Suspect]
     Active Substance: TIOTROPIUM BROMIDE MONOHYDRATE
     Indication: PRODUCT USED FOR UNKNOWN INDICATION
     Route: 065
  3. XOLAIR [Suspect]
     Active Substance: OMALIZUMAB
     Route: 058
     Dates: start: 20131216
  4. XOLAIR [Suspect]
     Active Substance: OMALIZUMAB
     Route: 058
     Dates: start: 20150324
  5. XOLAIR [Suspect]
     Active Substance: OMALIZUMAB
     Route: 058
     Dates: start: 20140923
  6. XOLAIR [Suspect]
     Active Substance: OMALIZUMAB
     Route: 058
     Dates: start: 20190912
  7. XOLAIR [Suspect]
     Active Substance: OMALIZUMAB
     Indication: ASTHMA
     Route: 058
     Dates: start: 20121120
  8. XOLAIR [Suspect]
     Active Substance: OMALIZUMAB
     Route: 058
     Dates: start: 20150901

REACTIONS (13)
  - Dyspepsia [Unknown]
  - Breath sounds abnormal [Recovering/Resolving]
  - Pulmonary congestion [Recovering/Resolving]
  - Oral herpes [Unknown]
  - Respiratory rate increased [Unknown]
  - Pneumonia [Recovering/Resolving]
  - Body temperature decreased [Unknown]
  - Forced expiratory volume decreased [Not Recovered/Not Resolved]
  - Respiratory tract infection [Recovering/Resolving]
  - Respiratory disorder [Recovering/Resolving]
  - Joint swelling [Unknown]
  - Weight increased [Unknown]
  - Cough [Unknown]

NARRATIVE: CASE EVENT DATE: 201304
